FAERS Safety Report 6758956-8 (Version None)
Quarter: 2010Q2

REPORT INFORMATION
  Report Type: 
  Country: None (occurrence: None)
  Receive Date: 20100603
  Receipt Date: 20100526
  Transmission Date: 20101027
  Serious: Yes (Other)
  Sender: FDA-Public Use
  Company Number: 2010JP002499

PATIENT
  Age: 28 Year
  Sex: Female
  Weight: 59 kg

DRUGS (10)
  1. PROGRAF [Suspect]
     Indication: RHEUMATOID ARTHRITIS
     Dosage: 4 MG, UID/QD, ORAL; 3MG, /D, ORAL
     Route: 048
     Dates: start: 20080918, end: 20090203
  2. PROGRAF [Suspect]
     Indication: SYSTEMIC LUPUS ERYTHEMATOSUS
     Dosage: 4 MG, UID/QD, ORAL; 3MG, /D, ORAL
     Route: 048
     Dates: start: 20080918, end: 20090203
  3. PROGRAF [Suspect]
     Indication: RHEUMATOID ARTHRITIS
     Dosage: 4 MG, UID/QD, ORAL; 3MG, /D, ORAL
     Route: 048
     Dates: start: 20090318
  4. PROGRAF [Suspect]
     Indication: SYSTEMIC LUPUS ERYTHEMATOSUS
     Dosage: 4 MG, UID/QD, ORAL; 3MG, /D, ORAL
     Route: 048
     Dates: start: 20090318
  5. ACTEMRA [Suspect]
     Indication: RHEUMATOID ARTHRITIS
     Dosage: 400 MG, MONTHLY, IV DRIP; IV DRIP
     Route: 041
     Dates: start: 20081201, end: 20090123
  6. ACTEMRA [Suspect]
     Indication: SYSTEMIC LUPUS ERYTHEMATOSUS
     Dosage: 400 MG, MONTHLY, IV DRIP; IV DRIP
     Route: 041
     Dates: start: 20081201, end: 20090123
  7. ACTEMRA [Suspect]
     Indication: RHEUMATOID ARTHRITIS
     Dosage: 400 MG, MONTHLY, IV DRIP; IV DRIP
     Route: 041
     Dates: start: 20090402
  8. ACTEMRA [Suspect]
     Indication: SYSTEMIC LUPUS ERYTHEMATOSUS
     Dosage: 400 MG, MONTHLY, IV DRIP; IV DRIP
     Route: 041
     Dates: start: 20090402
  9. PREDNISOLONE [Suspect]
     Indication: RHEUMATOID ARTHRITIS
     Dosage: 40 MG, UID/QD, ORAL; 20 MG, /D, ORAL
     Route: 048
  10. PREDNISOLONE [Suspect]
     Indication: SYSTEMIC LUPUS ERYTHEMATOSUS
     Dosage: 40 MG, UID/QD, ORAL; 20 MG, /D, ORAL
     Route: 048

REACTIONS (6)
  - CARDIAC VALVE VEGETATION [None]
  - DEHYDRATION [None]
  - ENDOCARDITIS [None]
  - RENAL FAILURE ACUTE [None]
  - SEPTIC SHOCK [None]
  - STAPHYLOCOCCAL INFECTION [None]
